FAERS Safety Report 19417037 (Version 1)
Quarter: 2021Q2

REPORT INFORMATION
  Report Type: Spontaneous
  Country: CA (occurrence: CA)
  Receive Date: 20210614
  Receipt Date: 20210614
  Transmission Date: 20210717
  Serious: Yes (Other)
  Sender: FDA-Public Use
  Company Number: CA-009507513-2106CAN003281

PATIENT
  Age: 11 Year

DRUGS (3)
  1. POSANOL [Suspect]
     Active Substance: POSACONAZOLE
     Indication: BLASTOMYCOSIS
     Dosage: UNK
     Route: 065
  2. SPORANOX [Suspect]
     Active Substance: ITRACONAZOLE
     Indication: BLASTOMYCOSIS
     Dosage: DOSAGE FORM: NOT SPECIFIED
     Route: 065
  3. AMPHOTERICIN B. [Suspect]
     Active Substance: AMPHOTERICIN B
     Indication: BLASTOMYCOSIS
     Dosage: DOSAGE FORM: NOT SPECIFIED
     Route: 065

REACTIONS (1)
  - Drug ineffective [Unknown]
